FAERS Safety Report 15952855 (Version 1)
Quarter: 2019Q1

REPORT INFORMATION
  Report Type: Spontaneous
  Country: GB (occurrence: GB)
  Receive Date: 20190212
  Receipt Date: 20190212
  Transmission Date: 20190417
  Serious: Yes (Other)
  Sender: FDA-Public Use
  Company Number: GB-TESARO-2019-TSO00842-GB

PATIENT

DRUGS (2)
  1. ZEJULA [Suspect]
     Active Substance: NIRAPARIB
     Indication: OVARIAN CANCER STAGE III
     Dosage: 200 MG, UNK
     Dates: start: 201810, end: 201901
  2. ZEJULA [Suspect]
     Active Substance: NIRAPARIB
     Dosage: 100 MG, UNK
     Dates: start: 20190129

REACTIONS (5)
  - Raynaud^s phenomenon [Unknown]
  - Bone marrow failure [Unknown]
  - Parkinson^s disease [Unknown]
  - Haematotoxicity [Unknown]
  - Syncope [Unknown]

NARRATIVE: CASE EVENT DATE: 2019
